FAERS Safety Report 4930138-1 (Version None)
Quarter: 2006Q1

REPORT INFORMATION
  Report Type: 
  Country: None (occurrence: None)
  Receive Date: 20060228
  Receipt Date: 20060209
  Transmission Date: 20060701
  Serious: Yes (Other)
  Sender: FDA-Public Use
  Company Number: CA200602002278

PATIENT
  Age: 33 Year
  Sex: Male

DRUGS (2)
  1. ZYPREXA [Suspect]
     Dosage: SEE IMAGE
  2. LITHIUM (LITHIUM) [Concomitant]

REACTIONS (1)
  - UPPER GASTROINTESTINAL HAEMORRHAGE [None]
